FAERS Safety Report 6469778-X (Version None)
Quarter: 2009Q4

REPORT INFORMATION
  Report Type: 
  Country: None (occurrence: None)
  Receive Date: 20091203
  Receipt Date: 20080722
  Transmission Date: 20100525
  Serious: Yes (Hospitalization)
  Sender: FDA-Public Use
  Company Number: BE-ELI_LILLY_AND_COMPANY-BE200711002391

PATIENT
  Age: 60 Year
  Sex: Female

DRUGS (10)
  1. CYMBALTA [Suspect]
     Indication: OBSESSIVE-COMPULSIVE DISORDER
     Dosage: 60 MG, UNK
     Route: 048
     Dates: start: 20070501
  2. CYMBALTA [Suspect]
     Dosage: 30 MG, UNK
     Route: 048
     Dates: start: 20070101
  3. LANOXIN [Concomitant]
  4. COVERSYL [Concomitant]
     Dosage: 2 MG, DAILY (1/D)
     Route: 065
  5. LASIX [Concomitant]
     Dosage: 40 MG ON EVEN DAYS
     Route: 065
  6. ALDACTONE [Concomitant]
     Dosage: 25 MG, DAILY (1/D)
     Route: 065
  7. EMCONCOR [Concomitant]
     Dosage: 10 MG, DAILY (1/D)
     Route: 065
  8. GLUCOPHAGE [Concomitant]
     Dosage: UNK, UNKNOWN
     Route: 065
  9. STILNOCT [Concomitant]
     Dosage: 10 MG, DAILY (1/D)
     Route: 065
  10. LIPITOR [Concomitant]
     Dosage: 5 MG, DAILY (1/D)
     Route: 065

REACTIONS (2)
  - CARDIAC FAILURE [None]
  - MENTAL DISORDER [None]
